FAERS Safety Report 8875516 (Version 1)
Quarter: 2012Q4

REPORT INFORMATION
  Report Type: 
  Country: US (occurrence: US)
  Receive Date: 20121030
  Receipt Date: 20121030
  Transmission Date: 20130627
  Serious: No
  Sender: FDA-Public Use
  Company Number: US-ABBOTT-12P-163-0967272-00

PATIENT
  Sex: Female

DRUGS (4)
  1. LUPRON DEPOT 3.75 MG [Suspect]
     Indication: ENDOMETRIOSIS
  2. LUPRON DEPOT 3.75 MG [Suspect]
  3. LUPRON DEPOT 11.25 MG [Suspect]
     Indication: ENDOMETRIOSIS
  4. NORETHINDRONE [Concomitant]
     Indication: HORMONE REPLACEMENT THERAPY

REACTIONS (2)
  - Oedema peripheral [Recovered/Resolved]
  - Dizziness [Recovered/Resolved]
